FAERS Safety Report 16580071 (Version 1)
Quarter: 2019Q3

REPORT INFORMATION
  Report Type: Spontaneous
  Country: FR (occurrence: FR)
  Receive Date: 20190716
  Receipt Date: 20190716
  Transmission Date: 20191004
  Serious: Yes (Death)
  Sender: FDA-Public Use
  Company Number: FR-BAUSCH-BL-2019-019867

PATIENT
  Age: 25 Year
  Sex: Female

DRUGS (5)
  1. DIAZEPAM. [Suspect]
     Active Substance: DIAZEPAM
     Indication: PRODUCT USED FOR UNKNOWN INDICATION
     Dosage: DOSING: UNKNOWN
     Route: 065
     Dates: start: 2018
  2. TRAMADOL (CHLORHYDRATE DE) [Suspect]
     Active Substance: TRAMADOL HYDROCHLORIDE
     Indication: PRODUCT USED FOR UNKNOWN INDICATION
     Dosage: DOSING: UNKNOWN
     Route: 065
     Dates: start: 2018
  3. HYDROXYZINE (CHLORHYDRATE D) [Suspect]
     Active Substance: HYDROXYZINE HYDROCHLORIDE
     Indication: PRODUCT USED FOR UNKNOWN INDICATION
     Dosage: DOSING: UNKNOWN
     Route: 065
     Dates: start: 2018
  4. CETIRIZINE (DICHLORHYDRATE DE) [Suspect]
     Active Substance: CETIRIZINE HYDROCHLORIDE
     Indication: PRODUCT USED FOR UNKNOWN INDICATION
     Dosage: DOSING: UNKNOWN
     Route: 065
     Dates: start: 2018
  5. COCAINE [Suspect]
     Active Substance: COCAINE
     Indication: PRODUCT USED FOR UNKNOWN INDICATION
     Dosage: DOSING: UNKNOWN
     Route: 065
     Dates: start: 2018

REACTIONS (2)
  - Respiratory distress [Fatal]
  - Asphyxia [Fatal]

NARRATIVE: CASE EVENT DATE: 2018
